FAERS Safety Report 7498332-6 (Version None)
Quarter: 2011Q2

REPORT INFORMATION
  Report Type: 
  Country: None (occurrence: None)
  Receive Date: 20110524
  Receipt Date: 20110131
  Transmission Date: 20111010
  Serious: Yes (Hospitalization, Other)
  Sender: FDA-Public Use
  Company Number: US-BAYER-201029022NA

PATIENT
  Age: 20 Year
  Sex: Female
  Weight: 54.422 kg

DRUGS (6)
  1. UNKNOWN DRUG [Concomitant]
     Indication: CHOLECYSTITIS CHRONIC
     Dates: start: 20020101
  2. YAZ [Suspect]
     Indication: MENSTRUAL CYCLE MANAGEMENT
     Route: 048
     Dates: start: 20061201, end: 20090915
  3. ALLEGRA [Concomitant]
     Indication: CHOLECYSTITIS CHRONIC
     Dates: start: 20040101
  4. VALTREX [Concomitant]
  5. IBUPROFEN [Concomitant]
     Indication: PAIN
  6. MAXAIR [Concomitant]
     Indication: CHOLECYSTITIS CHRONIC
     Route: 055
     Dates: start: 20040101

REACTIONS (11)
  - INCISION SITE INFECTION [None]
  - DYSPEPSIA [None]
  - APHASIA [None]
  - BILIARY DYSKINESIA [None]
  - BILIARY COLIC [None]
  - NAUSEA [None]
  - PAIN [None]
  - ABDOMINAL DISTENSION [None]
  - CHOLECYSTITIS CHRONIC [None]
  - GASTRIC DISORDER [None]
  - GASTROINTESTINAL MOTILITY DISORDER [None]
